FAERS Safety Report 5431680-X (Version None)
Quarter: 2007Q3

REPORT INFORMATION
  Report Type: 
  Country: None (occurrence: None)
  Receive Date: 20070828
  Receipt Date: 20070814
  Transmission Date: 20080115
  Serious: Yes (Other)
  Sender: FDA-Public Use
  Company Number: 310099K07USA

PATIENT
  Age: 40 Year
  Sex: Female

DRUGS (2)
  1. GONAL-F [Suspect]
     Indication: INFERTILITY
     Dosage: 225 IU, 1 IN 1 DAYS, SUBCUTANEOUS; 225 IU, 1 IN 1 DAYS, SUBCUTANEOUS
     Route: 058
     Dates: start: 20070601, end: 20070601
  2. GONAL-F [Suspect]
     Indication: INFERTILITY
     Dosage: 225 IU, 1 IN 1 DAYS, SUBCUTANEOUS; 225 IU, 1 IN 1 DAYS, SUBCUTANEOUS
     Route: 058
     Dates: start: 20070704, end: 20070709

REACTIONS (2)
  - ABORTION SPONTANEOUS [None]
  - DRUG EXPOSURE DURING PREGNANCY [None]
